FAERS Safety Report 10568290 (Version 1)
Quarter: 2014Q4

REPORT INFORMATION
  Report Type: Spontaneous
  Country: CA (occurrence: None)
  Receive Date: 20141105
  Receipt Date: 20141105
  Transmission Date: 20150529
  Serious: Yes (Life-Threatening, Hospitalization, Other)
  Sender: FDA-Public Use
  Company Number: None

PATIENT
  Age: 75 Year
  Sex: Female
  Weight: 52.16 kg

DRUGS (1)
  1. LATUDA [Suspect]
     Active Substance: LURASIDONE HYDROCHLORIDE
     Indication: BIPOLAR DISORDER
     Dosage: HALF OF PILL, TAKEN BY MOUTH
     Route: 048

REACTIONS (6)
  - Sleep disorder [None]
  - Diet refusal [None]
  - Unresponsive to stimuli [None]
  - Agitation [None]
  - Seizure [None]
  - Muscle tightness [None]

NARRATIVE: CASE EVENT DATE: 20141101
